FAERS Safety Report 4946361-6 (Version None)
Quarter: 2006Q1

REPORT INFORMATION
  Report Type: 
  Country: None (occurrence: None)
  Receive Date: 20060317
  Receipt Date: 20060308
  Transmission Date: 20060701
  Serious: Yes (Other)
  Sender: FDA-Public Use
  Company Number: PHEH2006US03180

PATIENT
  Age: 84 Year
  Sex: Female

DRUGS (3)
  1. FEMARA [Suspect]
     Indication: BREAST CANCER
     Dosage: 2.5 MG, QD
     Route: 048
     Dates: start: 20060306
  2. ANTIHYPERTENSIVES [Concomitant]
  3. ASPIRIN [Concomitant]
     Dosage: 81 MG, UNK

REACTIONS (1)
  - RECTAL HAEMORRHAGE [None]
